FAERS Safety Report 9908424 (Version 1)
Quarter: 2014Q1

REPORT INFORMATION
  Report Type: Spontaneous
  Country: US (occurrence: None)
  Receive Date: 20140214
  Receipt Date: 20140214
  Transmission Date: 20141002
  Serious: Yes (Hospitalization)
  Sender: FDA-Public Use
  Company Number: None

PATIENT
  Age: 91 None
  Sex: Female
  Weight: 49.3 kg

DRUGS (22)
  1. ASPIRIN [Suspect]
     Indication: THROMBOSIS PROPHYLAXIS
     Dosage: CHRONIC
     Route: 048
  2. LOVENOX [Suspect]
     Indication: THROMBOSIS PROPHYLAXIS
     Dosage: RECENT
     Route: 058
  3. LOVENOX [Suspect]
     Indication: HIP FRACTURE
     Dosage: RECENT
     Route: 058
  4. PATADAY [Concomitant]
  5. XALATAN [Concomitant]
  6. MIRALAX [Concomitant]
  7. TIMOPTIC [Concomitant]
  8. OCUVITE [Concomitant]
  9. CALCIUM [Concomitant]
  10. LEVAQUIN [Concomitant]
  11. NORVASC [Concomitant]
  12. FOLIC ACID [Concomitant]
  13. PRAVACHOL [Concomitant]
  14. VITAMIN D3 [Concomitant]
  15. SYNTHROID [Concomitant]
  16. SENOKOT [Concomitant]
  17. XOPENEX [Concomitant]
  18. TESSALON [Concomitant]
  19. ROBITUSSIN [Concomitant]
  20. AMBIEN [Concomitant]
  21. KLONOPIN [Concomitant]
  22. TYLENOL [Concomitant]

REACTIONS (4)
  - Upper gastrointestinal haemorrhage [None]
  - Anaemia [None]
  - Peptic ulcer [None]
  - Condition aggravated [None]
